FAERS Safety Report 8317565-X (Version None)
Quarter: 2012Q2

REPORT INFORMATION
  Report Type: 
  Country: None (occurrence: None)
  Receive Date: 20120427
  Receipt Date: 20090603
  Transmission Date: 20120825
  Serious: No
  Sender: FDA-Public Use
  Company Number: US-TEVA-2009006376

PATIENT
  Age: 45 Year
  Sex: Female

DRUGS (1)
  1. NUVIGIL [Suspect]
     Indication: SLEEP DISORDER
     Route: 048
     Dates: start: 20090603

REACTIONS (2)
  - EUPHORIC MOOD [None]
  - DRUG INEFFECTIVE [None]
